FAERS Safety Report 7811421-9 (Version None)
Quarter: 2011Q4

REPORT INFORMATION
  Report Type: 
  Country: None (occurrence: None)
  Receive Date: 20111013
  Receipt Date: 20111004
  Transmission Date: 20120403
  Serious: Yes (Hospitalization)
  Sender: FDA-Public Use
  Company Number: US-ASTRAZENECA-2011SE52308

PATIENT
  Age: 51 Year
  Sex: Female

DRUGS (1)
  1. CRESTOR [Suspect]
     Route: 048

REACTIONS (11)
  - FEELING COLD [None]
  - PYREXIA [None]
  - HYPERHIDROSIS [None]
  - RENAL FAILURE [None]
  - ADVERSE EVENT [None]
  - ABNORMAL BEHAVIOUR [None]
  - OEDEMA PERIPHERAL [None]
  - RHABDOMYOLYSIS [None]
  - PRURITUS [None]
  - SWELLING FACE [None]
  - NEURALGIA [None]
